FAERS Safety Report 8548646-3 (Version None)
Quarter: 2012Q3

REPORT INFORMATION
  Report Type: 
  Country: None (occurrence: None)
  Receive Date: 20120730
  Receipt Date: 20120719
  Transmission Date: 20120928
  Serious: Yes (Hospitalization)
  Sender: FDA-Public Use
  Company Number: JP-VERTEX PHARMACEUTICALS INC.-AE-2012-010608

PATIENT
  Age: 51 Year
  Sex: Male

DRUGS (7)
  1. URSO 250 [Concomitant]
     Route: 048
     Dates: start: 20111125
  2. TELAVIC (TELAPREVIR) [Suspect]
     Indication: HEPATITIS C
     Route: 048
     Dates: start: 20120706, end: 20120713
  3. HUMULIN R [Concomitant]
     Route: 058
     Dates: start: 20120704, end: 20120716
  4. LANSOPRAZOLE [Concomitant]
     Route: 048
     Dates: start: 20120710, end: 20120717
  5. REBETOL [Concomitant]
     Route: 048
     Dates: start: 20120706, end: 20120717
  6. PEG-INTRON [Concomitant]
     Route: 058
     Dates: start: 20120706
  7. LENDORMIN D [Concomitant]
     Route: 048
     Dates: start: 20120704

REACTIONS (1)
  - RENAL DISORDER [None]
